FAERS Safety Report 9057528 (Version 1)
Quarter: 2013Q1

REPORT INFORMATION
  Report Type: Spontaneous
  Country: US (occurrence: None)
  Receive Date: 20130204
  Receipt Date: 20130204
  Transmission Date: 20140127
  Serious: No
  Sender: FDA-Public Use
  Company Number: None

PATIENT
  Age: 66 Year
  Sex: Male
  Weight: 75.3 kg

DRUGS (1)
  1. FLUOROURACIL [Suspect]
     Indication: PRECANCEROUS CELLS PRESENT
     Route: 061
     Dates: start: 20130101, end: 20130121

REACTIONS (4)
  - Musculoskeletal pain [None]
  - Rash [None]
  - Herpes zoster [None]
  - Malaise [None]
